FAERS Safety Report 8785999 (Version 1)
Quarter: 2012Q4

REPORT INFORMATION
  Report Type: Spontaneous
  Country: AT (occurrence: None)
  Receive Date: 20120905
  Receipt Date: 20120905
  Transmission Date: 20130627
  Serious: Yes (Hospitalization, Other)
  Sender: FDA-Public Use
  Company Number: FK201202517

PATIENT
  Age: 76 Year
  Sex: Female

DRUGS (1)
  1. LIDOCAINE [Suspect]
     Indication: LOCAL ANAESTHESIA

REACTIONS (4)
  - Periorbital haematoma [None]
  - Diplopia [None]
  - Muscle fibrosis [None]
  - Toxicity to various agents [None]
